FAERS Safety Report 7099386-1 (Version None)
Quarter: 2010Q4

REPORT INFORMATION
  Report Type: 
  Country: None (occurrence: None)
  Receive Date: 20101105
  Receipt Date: 20101021
  Transmission Date: 20110411
  Serious: Yes (Death, Congenital Anomaly, Other)
  Sender: FDA-Public Use
  Company Number: AUR-APL-2010-01692

PATIENT
  Age: 34 Week
  Sex: Female
  Weight: 2.1 kg

DRUGS (2)
  1. SERTRALINE HYDROCHLORIDE [Suspect]
     Indication: DEPRESSION
     Dosage: 100MG, TRANSPLACENT
     Route: 064
  2. CIPRALEX [Suspect]
     Indication: DEPRESSION
     Dosage: 20MG, TRANSPLACENT
     Route: 064

REACTIONS (6)
  - FORCEPS DELIVERY [None]
  - HYPOXIC-ISCHAEMIC ENCEPHALOPATHY [None]
  - INTRA-UTERINE DEATH [None]
  - MATERNAL DRUGS AFFECTING FOETUS [None]
  - PLACENTAL DISORDER [None]
  - UMBILICAL CORD ABNORMALITY [None]
